FAERS Safety Report 13569187 (Version 2)
Quarter: 2017Q2

REPORT INFORMATION
  Report Type: Report from Study
  Country: US (occurrence: US)
  Receive Date: 20170522
  Receipt Date: 20170630
  Transmission Date: 20170830
  Serious: Yes (Life-Threatening, Hospitalization, Other)
  Sender: FDA-Public Use
  Company Number: US-ASTELLAS-2017US016421

PATIENT
  Age: 59 Year
  Sex: Male
  Weight: 100 kg

DRUGS (31)
  1. TACROLIMUS. [Suspect]
     Active Substance: TACROLIMUS
     Dosage: 4 MG (4MG AM/4MG PM), TWICE DAILY
     Route: 050
     Dates: start: 20170503, end: 20170503
  2. TACROLIMUS. [Suspect]
     Active Substance: TACROLIMUS
     Dosage: 1 MG (1MG AM/1MG PM), TWICE DAILY
     Route: 050
     Dates: start: 20170510, end: 20170512
  3. TACROLIMUS. [Suspect]
     Active Substance: TACROLIMUS
     Dosage: 1.5 MG (1.5MG AM/1.5MG PM), TWICE DAILY
     Route: 050
     Dates: start: 20170514, end: 20170514
  4. NORVASC [Concomitant]
     Active Substance: AMLODIPINE BESYLATE
     Indication: HYPERTENSION
     Dosage: 10 MG, ONCE DAILY (EVERY MORNING)
     Route: 048
  5. LIPITOR [Concomitant]
     Active Substance: ATORVASTATIN CALCIUM
     Indication: HYPERCHOLESTEROLAEMIA
     Route: 048
  6. FLOMAX [Concomitant]
     Active Substance: TAMSULOSIN HYDROCHLORIDE
     Indication: BENIGN PROSTATIC HYPERPLASIA
     Dosage: 1 DF, ONCE DAILY (WITH BREAKFAST)
     Route: 048
  7. TACROLIMUS. [Suspect]
     Active Substance: TACROLIMUS
     Indication: PROPHYLAXIS AGAINST TRANSPLANT REJECTION
     Dosage: 3 MG (3 MG AM/ 3 MG PM), TWICE DAILY
     Route: 048
     Dates: start: 20170425, end: 20170425
  8. TACROLIMUS. [Suspect]
     Active Substance: TACROLIMUS
     Dosage: 2 MG (2MG AM/2MG PM), TWICE DAILY
     Route: 048
     Dates: start: 20170506, end: 20170508
  9. TACROLIMUS. [Suspect]
     Active Substance: TACROLIMUS
     Route: 048
     Dates: start: 20170515, end: 20170515
  10. TACROLIMUS. [Suspect]
     Active Substance: TACROLIMUS
     Indication: PROPHYLAXIS AGAINST TRANSPLANT REJECTION
     Route: 050
     Dates: start: 20170501, end: 20170501
  11. TACROLIMUS. [Suspect]
     Active Substance: TACROLIMUS
     Route: 050
     Dates: start: 20170504, end: 20170504
  12. ASPIRIN. [Concomitant]
     Active Substance: ASPIRIN
     Indication: PRODUCT USED FOR UNKNOWN INDICATION
     Route: 048
  13. KEFLEX [Concomitant]
     Active Substance: CEPHALEXIN
     Indication: PROPHYLAXIS URINARY TRACT INFECTION
     Route: 048
  14. AMBIEN [Concomitant]
     Active Substance: ZOLPIDEM TARTRATE
     Indication: INSOMNIA
     Dosage: 5 MG, NIGHTLY AS NEEDED
     Route: 048
  15. TYLENOL [Concomitant]
     Active Substance: ACETAMINOPHEN
     Indication: PAIN
     Dosage: 1-2 TABLETS, EVERY 6 HOURS
     Route: 048
  16. MYFORTIC [Concomitant]
     Active Substance: MYCOPHENOLATE SODIUM
     Indication: PROPHYLAXIS AGAINST TRANSPLANT REJECTION
     Route: 048
  17. ROXICODONE [Concomitant]
     Active Substance: OXYCODONE HYDROCHLORIDE
     Indication: PAIN
     Dosage: 360 MG, EVERY 4 HOURS
     Route: 048
  18. TACROLIMUS. [Suspect]
     Active Substance: TACROLIMUS
     Dosage: 5 MG (5 AM/5 PM), TWICE DAILY
     Route: 048
     Dates: start: 20170426, end: 20170428
  19. TACROLIMUS. [Suspect]
     Active Substance: TACROLIMUS
     Dosage: 3 MG (3MG AM/3MG PM), TWICE DAILY
     Route: 050
     Dates: start: 20170502, end: 20170502
  20. TACROLIMUS. [Suspect]
     Active Substance: TACROLIMUS
     Route: 048
     Dates: start: 20170505, end: 20170505
  21. TACROLIMUS. [Suspect]
     Active Substance: TACROLIMUS
     Route: 050
     Dates: start: 20170515, end: 20170515
  22. SINEQUAN [Concomitant]
     Active Substance: DOXEPIN HYDROCHLORIDE
     Indication: PRODUCT USED FOR UNKNOWN INDICATION
     Route: 048
  23. PROTONIX [Concomitant]
     Active Substance: PANTOPRAZOLE SODIUM
     Indication: DYSPEPSIA
     Route: 048
  24. TACROLIMUS. [Suspect]
     Active Substance: TACROLIMUS
     Route: 048
     Dates: start: 20170509, end: 20170509
  25. TACROLIMUS. [Suspect]
     Active Substance: TACROLIMUS
     Dosage: 1.5 MG (1.5MG AM/1.5MG PM), TWICEDAILY
     Route: 048
     Dates: start: 20170516
  26. TACROLIMUS. [Suspect]
     Active Substance: TACROLIMUS
     Route: 050
     Dates: start: 20170509, end: 20170509
  27. TACROLIMUS. [Suspect]
     Active Substance: TACROLIMUS
     Dosage: 2.5 MG (1 MG AM.1.5 MG PM), OTHER
     Route: 050
     Dates: start: 20170513, end: 20170513
  28. COLACE [Concomitant]
     Active Substance: DOCUSATE SODIUM
     Indication: PRODUCT USED FOR UNKNOWN INDICATION
     Dosage: 100 MG, ONCE DAILY (EVERY EVENING)
     Route: 048
  29. DELTASONE [Concomitant]
     Active Substance: PREDNISONE
     Indication: PROPHYLAXIS AGAINST TRANSPLANT REJECTION
     Route: 048
  30. BACTRIM [Concomitant]
     Active Substance: SULFAMETHOXAZOLE\TRIMETHOPRIM
     Indication: PROPHYLAXIS
     Route: 048
  31. IMODIUM MULTI-SYMPTOM RELIEF [Concomitant]
     Active Substance: DIMETHICONE\LOPERAMIDE HYDROCHLORIDE
     Indication: DIARRHOEA
     Route: 048

REACTIONS (6)
  - Cerebrovascular accident [Recovered/Resolved with Sequelae]
  - Incision site abscess [Recovered/Resolved]
  - Deep vein thrombosis [Recovered/Resolved]
  - Carotid artery occlusion [Recovered/Resolved]
  - Respiratory failure [Recovered/Resolved]
  - Ischaemic stroke [Recovered/Resolved with Sequelae]

NARRATIVE: CASE EVENT DATE: 20170504
